FAERS Safety Report 8303346-X (Version None)
Quarter: 2012Q2

REPORT INFORMATION
  Report Type: 
  Country: None (occurrence: None)
  Receive Date: 20120423
  Receipt Date: 20120412
  Transmission Date: 20120825
  Serious: No
  Sender: FDA-Public Use
  Company Number: US-BIOGENIDEC-2012BI013657

PATIENT
  Sex: Female

DRUGS (3)
  1. AVONEX [Concomitant]
     Indication: MULTIPLE SCLEROSIS
     Route: 030
     Dates: start: 20081101
  2. TYSABRI [Suspect]
     Indication: MULTIPLE SCLEROSIS
     Route: 042
     Dates: start: 20111014
  3. AVONEX [Concomitant]
     Route: 030
     Dates: start: 20081128

REACTIONS (9)
  - HEADACHE [None]
  - PAIN OF SKIN [None]
  - FATIGUE [None]
  - DIZZINESS [None]
  - DEPRESSION [None]
  - PAIN IN EXTREMITY [None]
  - GAIT DISTURBANCE [None]
  - HYPOAESTHESIA [None]
  - NAUSEA [None]
